FAERS Safety Report 7484387-1 (Version None)
Quarter: 2011Q2

REPORT INFORMATION
  Report Type: 
  Country: None (occurrence: None)
  Receive Date: 20110517
  Receipt Date: 20101231
  Transmission Date: 20111010
  Serious: Yes (Other)
  Sender: FDA-Public Use
  Company Number: US-BAYER-201037221NA

PATIENT
  Age: 65 Year
  Sex: Female

DRUGS (2)
  1. ULTRAVIST 300 [Suspect]
     Indication: COMPUTERISED TOMOGRAM
     Dates: start: 20101008, end: 20101008
  2. GASTROGRAFIN [Suspect]

REACTIONS (4)
  - LARYNGEAL OEDEMA [None]
  - THROAT IRRITATION [None]
  - DYSPNOEA [None]
  - URTICARIA [None]
